FAERS Safety Report 24793076 (Version 1)
Quarter: 2024Q4

REPORT INFORMATION
  Report Type: Spontaneous
  Country: US (occurrence: US)
  Receive Date: 20241231
  Receipt Date: 20241231
  Transmission Date: 20250115
  Serious: Yes (Hospitalization)
  Sender: HETERO
  Company Number: US-AMAROX PHARMA-HET2024US05023

PATIENT
  Age: 75 Year

DRUGS (1)
  1. DULOXETINE [Suspect]
     Active Substance: DULOXETINE
     Indication: Product used for unknown indication
     Dosage: 60 MILLIGRAM PER DAY ( 60 MG BY MOUTH EVERY EVENING)
     Route: 048

REACTIONS (1)
  - Toxicity to various agents [Recovered/Resolved]
